FAERS Safety Report 7736163-X (Version None)
Quarter: 2011Q3

REPORT INFORMATION
  Report Type: 
  Country: None (occurrence: None)
  Receive Date: 20110902
  Receipt Date: 20110819
  Transmission Date: 20111222
  Serious: Yes (Hospitalization)
  Sender: FDA-Public Use
  Company Number: 1000023195

PATIENT
  Age: 55 Year
  Sex: Female

DRUGS (7)
  1. TERCIAN (CYAMEMAZINE) [Suspect]
     Indication: PSYCHOTIC DISORDER
     Dosage: 50 MG (50 MG, 1 IN 1 D),ORAL
     Route: 048
     Dates: start: 20110713, end: 20110717
  2. TERCIAN (CYAMEMAZINE) [Suspect]
     Indication: PSYCHOTIC DISORDER
     Dosage: 50 MG (50 MG, 1 IN 1 D),ORAL
     Route: 048
     Dates: start: 20110612
  3. ZYPREXA [Suspect]
     Indication: PSYCHOTIC DISORDER
     Dosage: 20 MG (20 MG, 1IN 1 D),ORAL
     Route: 048
     Dates: start: 20110713, end: 20110717
  4. ZYPREXA [Suspect]
     Indication: PSYCHOTIC DISORDER
     Dosage: 20 MG (20 MG, 1IN 1 D),ORAL
     Route: 048
     Dates: start: 20110612, end: 20110614
  5. ESCITALOPRAM [Suspect]
     Indication: DEPRESSION
     Dosage: 20 MG (20 MG, 1 -IN 1 D),ORAL
     Route: 048
     Dates: start: 20110721, end: 20110727
  6. HALDOL [Suspect]
     Indication: PSYCHOTIC DISORDER
     Dosage: 20 MG (20 MG, 1 IN 1 D), ORAL
     Route: 048
     Dates: start: 20110718, end: 20110727
  7. HALDOL [Suspect]
     Indication: PSYCHOTIC DISORDER
     Dosage: 20 MG (20 MG, 1 IN 1 D), ORAL
     Route: 048
     Dates: start: 20110614, end: 20110713

REACTIONS (9)
  - DEPRESSION [None]
  - BLOOD BILIRUBIN INCREASED [None]
  - BILIRUBIN CONJUGATED INCREASED [None]
  - GAMMA-GLUTAMYLTRANSFERASE INCREASED [None]
  - ALANINE AMINOTRANSFERASE INCREASED [None]
  - ASPARTATE AMINOTRANSFERASE INCREASED [None]
  - JAUNDICE [None]
  - BLOOD CREATINE PHOSPHOKINASE INCREASED [None]
  - BLOOD ALKALINE PHOSPHATASE INCREASED [None]
